FAERS Safety Report 22843371 (Version 3)
Quarter: 2023Q4

REPORT INFORMATION
  Report Type: Spontaneous
  Country: US (occurrence: US)
  Receive Date: 20230821
  Receipt Date: 20231121
  Transmission Date: 20240109
  Serious: Yes (Hospitalization)
  Sender: FDA-Public Use
  Company Number: US-BRISTOL-MYERS SQUIBB COMPANY-2023-116422

PATIENT
  Age: 69 Year
  Sex: Male

DRUGS (3)
  1. OPDIVO [Suspect]
     Active Substance: NIVOLUMAB
     Indication: Neuroendocrine carcinoma of the skin
     Dosage: FREQ : OPDIVO EVERY 4 WEEKS
     Route: 042
     Dates: end: 20231016
  2. OPDIVO [Suspect]
     Active Substance: NIVOLUMAB
     Dosage: FREQ : OPDIVO EVERY 3 WEEKS, 28 DAYS.
     Route: 042
     Dates: end: 20231016
  3. YERVOY [Suspect]
     Active Substance: IPILIMUMAB
     Indication: Neuroendocrine carcinoma of the skin
     Dosage: YERVOY 21 DAYS
     Route: 042
     Dates: end: 20231016

REACTIONS (2)
  - Hospitalisation [Unknown]
  - Off label use [Unknown]

NARRATIVE: CASE EVENT DATE: 20230802
